FAERS Safety Report 6393891-9 (Version None)
Quarter: 2009Q4

REPORT INFORMATION
  Report Type: 
  Country: None (occurrence: None)
  Receive Date: 20091008
  Receipt Date: 20091002
  Transmission Date: 20100525
  Serious: Yes (Hospitalization)
  Sender: FDA-Public Use
  Company Number: DK-AVENTIS-200916735GDDC

PATIENT
  Age: 75 Year
  Sex: Male

DRUGS (24)
  1. LANTUS [Suspect]
     Route: 058
     Dates: start: 20090210
  2. AUTOPEN INSULIN INJECTION PEN [Suspect]
  3. PREDNISOLONE [Suspect]
     Route: 048
  4. COZAAR [Concomitant]
     Indication: HYPERTENSION
     Dates: start: 20090201, end: 20090501
  5. NOVOMIX 30 [Concomitant]
     Dosage: DOSE: 30+35
  6. ACTRAPID [Concomitant]
  7. BETNOVAT                           /00008501/ [Concomitant]
     Dosage: DOSE: 1 APPLICATION
  8. PANTOLOC                           /01263201/ [Concomitant]
  9. MYCOSTATIN                         /00036501/ [Concomitant]
     Dosage: DOSE: 1 X 4
  10. UNIKALK [Concomitant]
     Dosage: DOSE QUANTITY: 2
  11. HJERTEMAGNYL                       /00228701/ [Concomitant]
  12. CENTYL [Concomitant]
     Dosage: DOSE QUANTITY: 2
  13. AMLODIPINE [Concomitant]
     Dosage: DOSE: 10 X 2
  14. SIMVASTATIN [Concomitant]
  15. PROSCAR [Concomitant]
  16. FLUCONAZOLE [Concomitant]
  17. IMUREL                             /00001501/ [Concomitant]
     Dosage: DOSE: 50 X 2
  18. PINEX [Concomitant]
     Dosage: DOSE: 1 X 4
  19. ALOPAM [Concomitant]
  20. STILNOCT [Concomitant]
  21. VENLAFAXIN [Concomitant]
     Dosage: DOSE QUANTITY: 1
  22. KODEIN [Concomitant]
     Dosage: DOSE: 25 X 4
  23. KODEIN [Concomitant]
     Dosage: DOSE: 50 MG P.N. X 1 MAX X 2 DAYS
  24. CETIRIZINE [Concomitant]

REACTIONS (3)
  - GENITAL HERPES [None]
  - ORAL CANDIDIASIS [None]
  - PEMPHIGOID [None]
